FAERS Safety Report 9843155 (Version 1)
Quarter: 2014Q1

REPORT INFORMATION
  Report Type: Spontaneous
  Country: DK (occurrence: DK)
  Receive Date: 20140124
  Receipt Date: 20140124
  Transmission Date: 20141002
  Serious: Yes (Life-Threatening, Hospitalization, Disabling)
  Sender: FDA-Public Use
  Company Number: DK-B.I. PHARMACEUTICALS,INC./RIDGEFIELD-2014-BI-03415DB

PATIENT
  Age: 75 Year
  Sex: Male
  Weight: 100 kg

DRUGS (3)
  1. PRADAXA [Suspect]
     Indication: ATRIAL FIBRILLATION
     Dosage: 300 MG
     Route: 048
     Dates: start: 20120330, end: 20131225
  2. MAREVAN [Concomitant]
     Indication: THROMBOSIS PROPHYLAXIS
     Dates: start: 2006, end: 20120329
  3. CRESTOR, ROSUVASTATIN CALCIUM [Concomitant]
     Indication: BLOOD CHOLESTEROL INCREASED

REACTIONS (1)
  - Cerebral thrombosis [Not Recovered/Not Resolved]
